FAERS Safety Report 9508522 (Version 1)
Quarter: 2013Q3

REPORT INFORMATION
  Report Type: Spontaneous
  Country: US (occurrence: US)
  Receive Date: 20130909
  Receipt Date: 20130909
  Transmission Date: 20140515
  Serious: Yes (Other)
  Sender: FDA-Public Use
  Company Number: US-ABBOTT-13P-163-1142033-00

PATIENT
  Age: 55 Year
  Sex: Female
  Weight: 112.14 kg

DRUGS (4)
  1. SYNTHROID [Suspect]
     Indication: PRODUCT USED FOR UNKNOWN INDICATION
     Dosage: 2 CAPSULES DAILY
  2. TIROSINT [Suspect]
     Indication: HYPOTHYROIDISM
     Dates: start: 201304, end: 201305
  3. TIROSINT [Suspect]
     Dosage: INCREASED
     Route: 048
     Dates: start: 201305, end: 201306
  4. TIROSINT [Suspect]
     Dosage: INCREASED
     Route: 048
     Dates: start: 201306

REACTIONS (13)
  - Gait disturbance [Unknown]
  - Fall [Unknown]
  - Apathy [Unknown]
  - Balance disorder [Unknown]
  - Anxiety [Unknown]
  - Anger [Unknown]
  - Eye disorder [Unknown]
  - Headache [Unknown]
  - Temperature intolerance [Unknown]
  - Hyperhidrosis [Unknown]
  - Cardiac disorder [Unknown]
  - Activities of daily living impaired [Unknown]
  - Gait disturbance [Unknown]
